FAERS Safety Report 7059442-0 (Version None)
Quarter: 2010Q4

REPORT INFORMATION
  Report Type: 
  Country: None (occurrence: None)
  Receive Date: 20101025
  Receipt Date: 20101019
  Transmission Date: 20110411
  Serious: Yes (Other)
  Sender: FDA-Public Use
  Company Number: US-JNJFOC-20100502355

PATIENT
  Sex: Female
  Weight: 11.34 kg

DRUGS (7)
  1. CHILDREN'S TYLENOL SUSPENSION [Suspect]
     Indication: NASAL CONGESTION
     Route: 065
  2. CHILDREN'S TYLENOL SUSPENSION [Suspect]
     Indication: PYREXIA
     Route: 065
  3. CHILDREN'S MOTRIN [Suspect]
     Indication: NASAL CONGESTION
     Route: 065
  4. CHILDREN'S MOTRIN [Suspect]
     Indication: PYREXIA
     Route: 065
  5. ZYRTEC [Suspect]
     Indication: NASAL CONGESTION
  6. ZYRTEC [Suspect]
     Indication: PYREXIA
  7. AUGMENTIN '125' [Concomitant]
     Indication: OTITIS MEDIA

REACTIONS (2)
  - ERYTHEMA MULTIFORME [None]
  - PRODUCT QUALITY ISSUE [None]
